FAERS Safety Report 24276985 (Version 1)
Quarter: 2024Q3

REPORT INFORMATION
  Report Type: Spontaneous
  Country: GB (occurrence: GB)
  Receive Date: 20240903
  Receipt Date: 20240903
  Transmission Date: 20241016
  Serious: Yes (Other)
  Sender: MYLAN
  Company Number: GB-MHRA-TPP14535094C8356435YC1724755773397

PATIENT
  Age: 76 Year
  Sex: Male
  Weight: 76 kg

DRUGS (14)
  1. ATORVASTATIN [Suspect]
     Active Substance: ATORVASTATIN
     Indication: Product used for unknown indication
     Dosage: 20 MILLIGRAM, QD
     Dates: start: 20240711
  2. BENSERAZIDE HYDROCHLORIDE\LEVODOPA [Concomitant]
     Active Substance: BENSERAZIDE HYDROCHLORIDE\LEVODOPA
     Dosage: 1 DOSAGE FORM, 5XD (FIVE TIMES A DAY (7.30AM, 10.30AM)
     Route: 065
     Dates: start: 20230728
  3. CARBIDOPA\LEVODOPA [Concomitant]
     Active Substance: CARBIDOPA\LEVODOPA
     Dosage: 1 DOSAGE FORM, PM (EACH NIGHT)
     Route: 065
     Dates: start: 20230728
  4. DOXAZOSIN [Concomitant]
     Active Substance: DOXAZOSIN MESYLATE
     Dosage: 3 DOSAGE FORM, AM (EACH MORNING)
     Route: 065
     Dates: start: 20230728
  5. BUDESONIDE\FORMOTEROL [Concomitant]
     Active Substance: BUDESONIDE\FORMOTEROL
     Dosage: UNK UNK, BID (1-2 PUFFS TWICE A DAY)
     Route: 065
     Dates: start: 20230728
  6. MELATONIN [Concomitant]
     Active Substance: MELATONIN
     Dosage: 1 DOSAGE FORM, PM (EACH NIGHT)
     Route: 065
     Dates: start: 20230728
  7. OMEPRAZOLE [Concomitant]
     Active Substance: OMEPRAZOLE
     Dosage: 1 DOSAGE FORM, AM (EACH MORNING)
     Route: 065
     Dates: start: 20230728
  8. RAMIPRIL [Concomitant]
     Active Substance: RAMIPRIL
     Dosage: 1 DOSAGE FORM, AM (EACH MORNING)
     Route: 065
     Dates: start: 20230728
  9. RASAGILINE [Concomitant]
     Active Substance: RASAGILINE\RASAGILINE MESYLATE
     Dosage: 1 DOSAGE FORM, AM (EACH MORNING)
     Route: 065
     Dates: start: 20230728
  10. ALBUTEROL [Concomitant]
     Active Substance: ALBUTEROL
     Dosage: 1 OR 2 DOSES CAN BE REPE
     Route: 055
     Dates: start: 20230728
  11. SENNA [Concomitant]
     Active Substance: SENNA LEAF\SENNOSIDES\SENNOSIDES A AND B
     Dosage: 2 DOSAGE FORM, PM (AT NIGHT)
     Route: 065
     Dates: start: 20230728
  12. APIXABAN [Concomitant]
     Active Substance: APIXABAN
     Dosage: 1 DOSAGE FORM (12 H)
     Route: 065
     Dates: start: 20240326
  13. ACETAMINOPHEN [Concomitant]
     Active Substance: ACETAMINOPHEN
     Dosage: TAKE 1 OR 2 TABLETS EVERY 4 TO 6 HOURS WHEN REQ
     Route: 065
     Dates: start: 20240326
  14. POLYETHYLENE GLYCOL 3350\POTASSIUM CHLORIDE\SODIUM BICARBONATE\SODIUM [Concomitant]
     Active Substance: POLYETHYLENE GLYCOL 3350\POTASSIUM CHLORIDE\SODIUM BICARBONATE\SODIUM CHLORIDE
     Dosage: TAKE ONE TO TWO SACHETS DISSOLVED IN WATER DAIL
     Route: 065
     Dates: start: 20240704

REACTIONS (5)
  - Myalgia [Recovered/Resolved]
  - Arthralgia [Recovered/Resolved]
  - Nausea [Recovered/Resolved]
  - Headache [Recovered/Resolved]
  - Dizziness [Recovered/Resolved]
